FAERS Safety Report 4732992-5 (Version None)
Quarter: 2005Q3

REPORT INFORMATION
  Report Type: 
  Country: None (occurrence: None)
  Receive Date: 20050801
  Receipt Date: 20050718
  Transmission Date: 20060218
  Serious: Yes (Hospitalization, Other)
  Sender: FDA-Public Use
  Company Number: US-2005-002666

PATIENT
  Age: 63 Year
  Sex: Female
  Weight: 71.7 kg

DRUGS (24)
  1. CLIMARA [Suspect]
     Indication: MENOPAUSAL SYMPTOMS
  2. PREMPRO [Suspect]
     Indication: MENOPAUSAL SYMPTOMS
  3. PROVERA [Suspect]
     Indication: HOT FLUSH
     Dates: start: 19950101, end: 20010101
  4. PREMARIN [Suspect]
     Indication: HOT FLUSH
     Dates: start: 19950101, end: 20010101
  5. ESTROGEN NOS (ESTROGEN NOS) [Suspect]
     Indication: MENOPAUSAL SYMPTOMS
  6. MEDROXYPROGESTERONE ACETATE [Suspect]
     Indication: MENOPAUSAL SYMPTOMS
  7. CYCRIN [Suspect]
     Indication: MENOPAUSAL SYMPTOMS
  8. AYGESTIN [Suspect]
     Indication: MENOPAUSAL SYMPTOMS
  9. PREMPHASE (PREMARIN;CYCRIN 14/14) [Suspect]
     Indication: MENOPAUSAL SYMPTOMS
  10. FEMHRT [Suspect]
     Indication: MENOPAUSAL SYMPTOMS
  11. VAGIFEM [Suspect]
     Indication: MENOPAUSAL SYMPTOMS
  12. ACTIVELLA [Suspect]
     Indication: MENOPAUSAL SYMPTOMS
  13. ESTRADIOL [Suspect]
     Indication: MENOPAUSAL SYMPTOMS
  14. CENESTIN [Suspect]
     Indication: MENOPAUSAL SYMPTOMS
  15. ESTRADERM [Suspect]
     Indication: MENOPAUSAL SYMPTOMS
  16. VIVELLE [Suspect]
     Indication: MENOPAUSAL SYMPTOMS
  17. COMBIPATCH [Suspect]
     Indication: MENOPAUSAL SYMPTOMS
  18. ESTRACE [Suspect]
     Indication: MENOPAUSAL SYMPTOMS
  19. ESTRATEST [Suspect]
     Indication: MENOPAUSAL SYMPTOMS
  20. ESTRATAB [Suspect]
     Indication: MENOPAUSAL SYMPTOMS
  21. OGEN [Suspect]
     Indication: MENOPAUSAL SYMPTOMS
  22. ESTROPIPATE [Suspect]
     Indication: MENOPAUSAL SYMPTOMS
  23. ORTHO TRI-CYCLEN [Suspect]
     Indication: MENOPAUSAL SYMPTOMS
  24. ORTHO-PREFEST (NORGESTIMATE, ESTRADIOL) [Suspect]
     Indication: MENOPAUSAL SYMPTOMS

REACTIONS (33)
  - ANXIETY [None]
  - ARTHRITIS [None]
  - ARTHROPATHY [None]
  - BLOOD CHOLESTEROL INCREASED [None]
  - BLOOD TRIGLYCERIDES INCREASED [None]
  - BREAST CANCER [None]
  - CARDIAC DISORDER [None]
  - CARDIOVASCULAR DISORDER [None]
  - CEREBRAL HAEMORRHAGE [None]
  - CEREBROVASCULAR ACCIDENT [None]
  - CEREBROVASCULAR DISORDER [None]
  - DEFORMITY [None]
  - DEHYDRATION [None]
  - DIABETES MELLITUS NON-INSULIN-DEPENDENT [None]
  - FATIGUE [None]
  - GALLBLADDER DISORDER [None]
  - HOT FLUSH [None]
  - HYPOTENSION [None]
  - LOW DENSITY LIPOPROTEIN INCREASED [None]
  - MYOCARDIAL INFARCTION [None]
  - OESTROGEN RECEPTOR ASSAY POSITIVE [None]
  - OSTEOPOROSIS [None]
  - PAIN [None]
  - PERIPHERAL VASCULAR DISORDER [None]
  - PNEUMONIA VIRAL [None]
  - PROGESTERONE RECEPTOR ASSAY POSITIVE [None]
  - PSYCHIATRIC SYMPTOM [None]
  - PYREXIA [None]
  - THROMBOSIS [None]
  - THYROID DISORDER [None]
  - VARICOSE VEIN [None]
  - VISUAL DISTURBANCE [None]
  - VOMITING [None]
